FAERS Safety Report 20169057 (Version 2)
Quarter: 2025Q2

REPORT INFORMATION
  Report Type: Spontaneous
  Country: CA (occurrence: CA)
  Receive Date: 20211210
  Receipt Date: 20250417
  Transmission Date: 20250717
  Serious: Yes (Other)
  Sender: STRIDES
  Company Number: CA-STRIDES ARCOLAB LIMITED-2021SP030849

PATIENT
  Sex: Male

DRUGS (4)
  1. PREDNISOLONE [Suspect]
     Active Substance: PREDNISOLONE
     Indication: Product used for unknown indication
     Route: 064
  2. PREDNISOLONE [Suspect]
     Active Substance: PREDNISOLONE
     Indication: Vasculitis
     Route: 064
  3. PREDNISOLONE [Suspect]
     Active Substance: PREDNISOLONE
     Route: 065
  4. AMOXICILLIN [Suspect]
     Active Substance: AMOXICILLIN
     Indication: Product used for unknown indication
     Route: 064

REACTIONS (3)
  - Tachycardia foetal [Unknown]
  - Premature baby [Unknown]
  - Foetal exposure during pregnancy [Unknown]
